FAERS Safety Report 7891816-8 (Version None)
Quarter: 2011Q4

REPORT INFORMATION
  Report Type: 
  Country: None (occurrence: None)
  Receive Date: 20111103
  Receipt Date: 20110810
  Transmission Date: 20120403
  Serious: No
  Sender: FDA-Public Use
  Company Number: US-AMGEN-USASP2011040623

PATIENT

DRUGS (8)
  1. CRESTOR [Concomitant]
     Dosage: 20 MG, UNK
  2. AMLODIPINE [Concomitant]
     Dosage: 2.5 MG, UNK
  3. ENBREL [Suspect]
     Indication: PRODUCT USED FOR UNKNOWN INDICATION
     Dosage: 25 MG, 2 TIMES/WK
     Route: 058
  4. GLIPIZIDE [Concomitant]
     Dosage: 2.5 MG, UNK
  5. LOSARTAN POTASICO [Concomitant]
     Dosage: 50 MG, UNK
  6. LEVOTHYROXINE SODIUM [Concomitant]
     Dosage: 100 MUG, UNK
  7. ALLOPURINOL [Concomitant]
     Dosage: 100 MG, UNK
  8. TORSEMIDE [Concomitant]
     Dosage: 20 MG, UNK

REACTIONS (2)
  - INJECTION SITE PRURITUS [None]
  - INJECTION SITE ERYTHEMA [None]
